FAERS Safety Report 7125534-0 (Version None)
Quarter: 2010Q4

REPORT INFORMATION
  Report Type: 
  Country: None (occurrence: None)
  Receive Date: 20101129
  Receipt Date: 20101119
  Transmission Date: 20110411
  Serious: Yes (Other)
  Sender: FDA-Public Use
  Company Number: B0677680A

PATIENT
  Sex: Female
  Weight: 73 kg

DRUGS (1)
  1. ALLI [Suspect]
     Indication: OVERWEIGHT
     Dosage: 120MG PER DAY
     Route: 048
     Dates: start: 20100923, end: 20100925

REACTIONS (8)
  - ALANINE AMINOTRANSFERASE INCREASED [None]
  - ASPARTATE AMINOTRANSFERASE INCREASED [None]
  - BLOOD LACTATE DEHYDROGENASE INCREASED [None]
  - CHROMATURIA [None]
  - FLATULENCE [None]
  - LIVER PALPABLE SUBCOSTAL [None]
  - STEATORRHOEA [None]
  - URINE ODOUR ABNORMAL [None]
